FAERS Safety Report 16576969 (Version 1)
Quarter: 2019Q3

REPORT INFORMATION
  Report Type: Spontaneous
  Country: ES (occurrence: ES)
  Receive Date: 20190716
  Receipt Date: 20190716
  Transmission Date: 20191004
  Serious: Yes (Other)
  Sender: FDA-Public Use
  Company Number: ES-EMCURE PHARMACEUTICALS LTD-2019-EPL-0452

PATIENT

DRUGS (1)
  1. CIDOFOVIR. [Suspect]
     Active Substance: CIDOFOVIR
     Indication: PAPILLOMA VIRAL INFECTION
     Dosage: STERILE CONCENTRATE

REACTIONS (6)
  - Condition aggravated [Unknown]
  - Product use issue [Unknown]
  - Vocal cord scarring [Unknown]
  - Drug ineffective for unapproved indication [Unknown]
  - Disease recurrence [Unknown]
  - Dysphonia [Unknown]
